FAERS Safety Report 19519600 (Version 1)
Quarter: 2021Q3

REPORT INFORMATION
  Report Type: Spontaneous
  Country: US (occurrence: US)
  Receive Date: 20210712
  Receipt Date: 20210712
  Transmission Date: 20211014
  Serious: Yes (Hospitalization)
  Sender: FDA-Public Use
  Company Number: None

PATIENT
  Age: 80 Year
  Sex: Female

DRUGS (12)
  1. HYDROXYCHLOR TABLET 200 MG [Concomitant]
  2. VANCOMYCIN CAPSULE 125 MG [Concomitant]
  3. TELMISARTAN TABLET 20 MG [Concomitant]
  4. ELIQUIS [Concomitant]
     Active Substance: APIXABAN
  5. SETRALINE TABLET 50 MG [Concomitant]
  6. REPATHA [Concomitant]
     Active Substance: EVOLOCUMAB
  7. ESOMPRA MAG CAP 40 MG DR [Concomitant]
  8. RANOLAZINE TABLET 500 MG ER [Concomitant]
  9. METOPROL SUC TABLET 25 MG ER [Concomitant]
     Dates: start: 20210429
  10. ESOMEPRA MAG CAPSULE 40 MG DR [Concomitant]
  11. REPATHA [Suspect]
     Active Substance: EVOLOCUMAB
     Indication: PRODUCT USED FOR UNKNOWN INDICATION
     Dosage: ?          OTHER FREQUENCY:EVERY OTHER WEEK;?
     Route: 058
     Dates: start: 20191008
  12. RANOLAZINE TAB 500 MG ER [Concomitant]

REACTIONS (1)
  - Clostridium difficile colitis [None]

NARRATIVE: CASE EVENT DATE: 20210624
